FAERS Safety Report 4497599-6 (Version None)
Quarter: 2004Q4

REPORT INFORMATION
  Report Type: 
  Country: None (occurrence: None)
  Receive Date: 20041104
  Receipt Date: 20041021
  Transmission Date: 20050328
  Serious: Yes (Death)
  Sender: FDA-Public Use
  Company Number: 2004-BP-10220MX

PATIENT
  Age: 74 Year
  Sex: Male

DRUGS (3)
  1. COMBIVENT [Suspect]
     Indication: ASTHMA
     Route: 055
     Dates: start: 20040809, end: 20041016
  2. AZLAIRE (PRANLUKAST) [Concomitant]
  3. SELOKEN (METOPROLOL TARTRATE) (TA) [Concomitant]

REACTIONS (1)
  - RESPIRATORY ARREST [None]
